FAERS Safety Report 5685565-4 (Version None)
Quarter: 2008Q1

REPORT INFORMATION
  Report Type: 
  Country: None (occurrence: None)
  Receive Date: 20080328
  Receipt Date: 20070913
  Transmission Date: 20080703
  Serious: No
  Sender: FDA-Public Use
  Company Number: US-BAYER-US-2007-034504

PATIENT
  Age: 41 Year
  Sex: Female
  Weight: 56 kg

DRUGS (2)
  1. MIRENA [Suspect]
     Indication: CONTRACEPTION
     Route: 015
     Dates: start: 20070518, end: 20070810
  2. MIRENA [Suspect]
     Route: 015
     Dates: start: 20070810, end: 20070810

REACTIONS (3)
  - IUCD COMPLICATION [None]
  - PROCEDURAL COMPLICATION [None]
  - PROCEDURAL PAIN [None]
